FAERS Safety Report 7309033-9 (Version None)
Quarter: 2011Q1

REPORT INFORMATION
  Report Type: 
  Country: None (occurrence: None)
  Receive Date: 20110223
  Receipt Date: 20110221
  Transmission Date: 20110831
  Serious: Yes (Other)
  Sender: FDA-Public Use
  Company Number: CHPA2011CH01298

PATIENT
  Age: 57 Year
  Sex: Female

DRUGS (2)
  1. NICOTINELL GUM [Suspect]
     Dosage: 0.5 DF, UNK
     Route: 048
     Dates: start: 20110221
  2. NICOTINELL GUM [Suspect]
     Dosage: 2 MG, APPROXIMATELY 8 GUMS DAILY
     Route: 048
     Dates: start: 20070301, end: 20110221

REACTIONS (2)
  - DRUG DEPENDENCE [None]
  - WRONG TECHNIQUE IN DRUG USAGE PROCESS [None]
